FAERS Safety Report 9616984 (Version 11)
Quarter: 2014Q1

REPORT INFORMATION
  Report Type: Report from Study
  Country: US (occurrence: US)
  Receive Date: 20131011
  Receipt Date: 20140321
  Transmission Date: 20141002
  Serious: Yes (Life-Threatening, Hospitalization, Other)
  Sender: FDA-Public Use
  Company Number: US-ACTELION-A-US2013-87464

PATIENT
  Age: 35 Year
  Sex: Female

DRUGS (11)
  1. VELETRI [Suspect]
     Indication: PULMONARY ARTERIAL HYPERTENSION
     Dosage: 17 NG/KG, UNK
     Route: 042
     Dates: start: 20120502
  2. VELETRI [Suspect]
     Dosage: 15 NG/KG, PER MIN
     Route: 042
     Dates: start: 20120418
  3. ADCIRCA [Concomitant]
     Dosage: 40 MG, BID
  4. LETAIRIS [Concomitant]
     Dosage: 10 MG, UNK
  5. COUMADIN [Concomitant]
     Dosage: 10 MG QD / 5 MG QD
  6. IRON [Concomitant]
     Dosage: 325 MG, TID
     Route: 048
  7. LOPRESSOR [Concomitant]
     Dosage: 25 MG, BID
  8. ZANTAC [Concomitant]
     Dosage: 150 MG, BID
  9. HEPARIN [Concomitant]
     Dosage: UNK
     Route: 058
  10. PANTOPRAZOLE [Concomitant]
     Dosage: 40 MG, QD
     Route: 048
  11. POTASSIUM ACETATE [Concomitant]
     Dosage: UNK

REACTIONS (33)
  - Septic shock [Recovered/Resolved]
  - Anaemia [Unknown]
  - Haemoglobin decreased [Unknown]
  - Haematocrit decreased [Unknown]
  - Electrocardiogram QT prolonged [Unknown]
  - Device related sepsis [Recovered/Resolved]
  - Pyrexia [Recovered/Resolved]
  - Chills [Recovered/Resolved]
  - Fatigue [Recovered/Resolved]
  - Bacteraemia [Recovered/Resolved]
  - Catheter site infection [Recovered/Resolved]
  - Catheter site swelling [Recovered/Resolved]
  - Catheter site erythema [Recovered/Resolved]
  - Tachycardia [Unknown]
  - Cardiac valve vegetation [Recovered/Resolved]
  - Endocarditis [Recovered/Resolved]
  - Arthralgia [Recovered/Resolved]
  - Musculoskeletal pain [Recovered/Resolved]
  - Sepsis [Recovered/Resolved]
  - Staphylococcus test positive [Recovered/Resolved]
  - Bacterial test positive [Recovered/Resolved]
  - Catheter site pain [Unknown]
  - Pyrexia [Unknown]
  - Application site erythema [Unknown]
  - Device related infection [Unknown]
  - Blood culture positive [Unknown]
  - Device leakage [Unknown]
  - Catheter site inflammation [Unknown]
  - Catheter site discharge [Recovered/Resolved]
  - Dermatitis contact [Unknown]
  - Purulent discharge [Recovered/Resolved]
  - Catheter management [Recovered/Resolved]
  - Palpitations [Recovered/Resolved]
